FAERS Safety Report 6426436-5 (Version None)
Quarter: 2009Q4

REPORT INFORMATION
  Report Type: 
  Country: None (occurrence: None)
  Receive Date: 20091104
  Receipt Date: 20091026
  Transmission Date: 20100525
  Serious: Yes (Other)
  Sender: FDA-Public Use
  Company Number: PHEH2009US14517

PATIENT
  Sex: Female

DRUGS (5)
  1. POTASSIUM CHLORIDE [Concomitant]
  2. EXJADE [Suspect]
     Dosage: 875 MG, DAILY
     Route: 048
     Dates: start: 20090709
  3. TORSEMIDE [Concomitant]
  4. COUMADIN [Concomitant]
  5. LEVOXYL [Concomitant]

REACTIONS (3)
  - ASPIRATION PLEURAL CAVITY [None]
  - DISEASE PROGRESSION [None]
  - LUNG DISORDER [None]
